FAERS Safety Report 25938303 (Version 1)
Quarter: 2025Q4

REPORT INFORMATION
  Report Type: Report from Study
  Country: CA (occurrence: CA)
  Receive Date: 20251018
  Receipt Date: 20251018
  Transmission Date: 20260117
  Serious: Yes (Other)
  Sender: CSL BEHRING
  Company Number: CA-BEH-2025200251

PATIENT
  Age: 75 Year
  Sex: Female
  Weight: 121 kg

DRUGS (25)
  1. BERINERT [Suspect]
     Active Substance: HUMAN C1-ESTERASE INHIBITOR
     Indication: Hereditary angioedema
     Dosage: 7000 IU, BIW
     Route: 058
     Dates: start: 20220906
  2. BERINERT [Suspect]
     Active Substance: HUMAN C1-ESTERASE INHIBITOR
     Indication: Prophylaxis
  3. BERINERT [Suspect]
     Active Substance: HUMAN C1-ESTERASE INHIBITOR
     Indication: Hereditary angioedema
     Dosage: 7000 IU, BIW
     Route: 058
     Dates: start: 20220906
  4. BERINERT [Suspect]
     Active Substance: HUMAN C1-ESTERASE INHIBITOR
     Indication: Prophylaxis
  5. LASIX [Concomitant]
     Active Substance: FUROSEMIDE
     Indication: Product used for unknown indication
  6. PINDOLOL [Concomitant]
     Active Substance: PINDOLOL
     Indication: Product used for unknown indication
     Route: 065
  7. CANDESARTAN [Concomitant]
     Active Substance: CANDESARTAN
     Indication: Product used for unknown indication
     Route: 065
  8. METFORMIN [Concomitant]
     Active Substance: METFORMIN HYDROCHLORIDE
  9. POTASSIUM [Concomitant]
     Active Substance: POTASSIUM
  10. LEVOTHYROXINE [Concomitant]
     Active Substance: LEVOTHYROXINE
  11. MONTELUKAST [Concomitant]
     Active Substance: MONTELUKAST
  12. IRON [Concomitant]
     Active Substance: IRON
  13. ALVESCO [Concomitant]
     Active Substance: CICLESONIDE
  14. UNSPECIFIED INGREDIENT [Concomitant]
     Active Substance: UNSPECIFIED INGREDIENT
  15. ZOPICLONE [Concomitant]
     Active Substance: ZOPICLONE
  16. B50 [Concomitant]
  17. VITAMINS [Concomitant]
     Active Substance: VITAMINS
  18. OMEGA 3 [Concomitant]
     Active Substance: CAPSAICIN
  19. B12 [Concomitant]
  20. CALCIUM [Concomitant]
     Active Substance: CALCIUM
  21. VITAMIN D [Concomitant]
     Active Substance: VITAMIN D NOS
  22. MAGNESIUM [Concomitant]
     Active Substance: MAGNESIUM
  23. Pantaloc [Concomitant]
  24. ATENOLOL [Concomitant]
     Active Substance: ATENOLOL
  25. HERBALS\TURMERIC [Concomitant]
     Active Substance: HERBALS\TURMERIC

REACTIONS (5)
  - Hereditary angioedema [Unknown]
  - Hereditary angioedema [Unknown]
  - Hereditary angioedema [Unknown]
  - Product use complaint [Unknown]
  - Pain in extremity [Unknown]

NARRATIVE: CASE EVENT DATE: 20250901
